FAERS Safety Report 8879862 (Version 3)
Quarter: 2014Q1

REPORT INFORMATION
  Report Type: Spontaneous
  Country: US (occurrence: US)
  Receive Date: 20121101
  Receipt Date: 20140120
  Transmission Date: 20141002
  Serious: Yes (Hospitalization, Other)
  Sender: FDA-Public Use
  Company Number: US-BAYER-2012-113432

PATIENT
  Age: 29 Year
  Sex: Female
  Weight: 58.96 kg

DRUGS (10)
  1. YAZ [Suspect]
     Dosage: UNK
     Dates: start: 2007, end: 2008
  2. YASMIN [Suspect]
     Dosage: UNK
     Dates: start: 2007, end: 2008
  3. ZOLOFT [Concomitant]
     Dosage: UNK
     Dates: start: 20070522
  4. XANAX [Concomitant]
     Dosage: UNK
     Dates: start: 20070522
  5. VALTREX [Concomitant]
     Dosage: UNK
     Dates: start: 20070522
  6. LIDOCAINE [Concomitant]
     Dosage: UNK
     Dates: start: 20070522
  7. VICODIN [Concomitant]
     Dosage: UNK
     Dates: start: 20070522
  8. XIBROM [Concomitant]
     Dosage: UNK
     Dates: start: 20070624
  9. HYDROCODONE/ACETAMINOPHEN [Concomitant]
     Dosage: 5MG/500MG
     Dates: start: 20070625
  10. PERCOCET [Concomitant]
     Dosage: UNK
     Dates: start: 20070718

REACTIONS (9)
  - Pulmonary embolism [None]
  - Gallbladder disorder [None]
  - Cholecystitis chronic [None]
  - Injury [None]
  - Pain [None]
  - Hepatobiliary scan abnormal [None]
  - Emotional distress [None]
  - Anxiety [None]
  - Psychological trauma [None]
